FAERS Safety Report 14005200 (Version 1)
Quarter: 2017Q3

REPORT INFORMATION
  Report Type: Other
  Country: RU (occurrence: FR)
  Receive Date: 20170922
  Receipt Date: 20170922
  Transmission Date: 20171128
  Serious: Yes (Other)
  Sender: FDA-Public Use
  Company Number: FR-MERCK KGAA-2027296

PATIENT
  Age: 7 Year
  Sex: Female
  Weight: 39 kg

DRUGS (3)
  1. ALPHACALCIDOL (ALFACALCIDOL)(ALFACALCIDOL) [Suspect]
     Active Substance: ALFACALCIDOL
  2. CALCIUM (CALCIUM)(CALCIUM) [Concomitant]
     Active Substance: CALCIUM
  3. NOVOTHYROX [Suspect]
     Active Substance: LEVOTHYROXINE SODIUM
     Indication: PRIMARY HYPOTHYROIDISM

REACTIONS (8)
  - Mentally late developer [None]
  - Obesity [None]
  - Cutaneous calcification [None]
  - Hypocalcaemia [None]
  - Blood parathyroid hormone increased [None]
  - Brachydactyly [None]
  - Hyperphosphataemia [None]
  - Hypothyroidism [None]
